FAERS Safety Report 17862430 (Version 1)
Quarter: 2020Q2

REPORT INFORMATION
  Report Type: Spontaneous
  Country: US (occurrence: US)
  Receive Date: 20200604
  Receipt Date: 20200604
  Transmission Date: 20200714
  Serious: No
  Sender: FDA-Public Use
  Company Number: US-TARO-2020TAR00737

PATIENT

DRUGS (1)
  1. CICLOPIROX OLAMINE CREAM USP 0.77% [Suspect]
     Active Substance: CICLOPIROX OLAMINE
     Indication: PRODUCT USED FOR UNKNOWN INDICATION
     Dosage: UNK, BID (ON FEET)
     Route: 061

REACTIONS (3)
  - Product quality issue [Unknown]
  - Product use complaint [Unknown]
  - Therapeutic product effect incomplete [Unknown]
